FAERS Safety Report 5938631-X (Version None)
Quarter: 2008Q4

REPORT INFORMATION
  Report Type: 
  Country: None (occurrence: None)
  Receive Date: 20081103
  Receipt Date: 20081022
  Transmission Date: 20090506
  Serious: Yes (Hospitalization)
  Sender: FDA-Public Use
  Company Number: FR-ROCHE-593093

PATIENT
  Sex: Female

DRUGS (6)
  1. CELLCEPT [Suspect]
     Indication: ORGAN TRANSPLANT
     Route: 048
     Dates: start: 20080802
  2. PROGRAF [Suspect]
     Indication: ORGAN TRANSPLANT
     Route: 048
     Dates: start: 20080802
  3. CORTANCYL [Concomitant]
  4. INIPOMP [Concomitant]
  5. TRIATEC [Concomitant]
  6. LEVEMIR [Concomitant]

REACTIONS (1)
  - MYOCLONUS [None]
